APPROVED DRUG PRODUCT: NARATRIPTAN
Active Ingredient: NARATRIPTAN HYDROCHLORIDE
Strength: EQ 1MG BASE
Dosage Form/Route: TABLET;ORAL
Application: A091326 | Product #001 | TE Code: AB
Applicant: PADAGIS US LLC
Approved: Jul 8, 2010 | RLD: No | RS: No | Type: RX